FAERS Safety Report 9606308 (Version 1)
Quarter: 2013Q4

REPORT INFORMATION
  Report Type: Spontaneous
  Country: US (occurrence: US)
  Receive Date: 20131008
  Receipt Date: 20131008
  Transmission Date: 20140711
  Serious: No
  Sender: FDA-Public Use
  Company Number: US-AMGEN-USASP2013048767

PATIENT
  Age: 66 Year
  Sex: Female

DRUGS (5)
  1. PROLIA [Suspect]
     Indication: OSTEOPOROSIS POSTMENOPAUSAL
     Dosage: UNK UNK, Q6MO
     Dates: start: 20130603
  2. SANDOSTATIN [Concomitant]
  3. LISINOPRIL [Concomitant]
     Dosage: 40 MG, UNK
  4. AMLODIPINE [Concomitant]
     Dosage: 5 MG, UNK
  5. YTTRIUM (90 Y) [Concomitant]

REACTIONS (4)
  - Pain [Unknown]
  - Arthralgia [Unknown]
  - Musculoskeletal pain [Unknown]
  - Insomnia [Unknown]
